FAERS Safety Report 5916286-8 (Version None)
Quarter: 2008Q4

REPORT INFORMATION
  Report Type: 
  Country: None (occurrence: None)
  Receive Date: 20081013
  Receipt Date: 20081003
  Transmission Date: 20090506
  Serious: Yes (Hospitalization)
  Sender: FDA-Public Use
  Company Number: PHHY2008GB21788

PATIENT
  Sex: Female

DRUGS (7)
  1. CLOZARIL [Suspect]
     Indication: SCHIZOPHRENIA
     Dosage: 550 MG DAILY
     Route: 048
  2. CLOZARIL [Suspect]
     Dosage: 150 MG AM, 250 MG PM
     Route: 048
  3. NAPROXEN [Concomitant]
  4. ENOXAPARIN SODIUM [Concomitant]
  5. ACETAMINOPHEN [Concomitant]
  6. TRAMADOL HCL [Concomitant]
  7. OMEPRAZOLE [Concomitant]

REACTIONS (3)
  - FALL [None]
  - HIP ARTHROPLASTY [None]
  - JOINT INJURY [None]
